FAERS Safety Report 8083896-4 (Version None)
Quarter: 2012Q1

REPORT INFORMATION
  Report Type: 
  Country: None (occurrence: None)
  Receive Date: 20120128
  Receipt Date: 20110203
  Transmission Date: 20120608
  Serious: No
  Sender: FDA-Public Use
  Company Number: US-ABBOTT-11P-163-0702414-00

PATIENT
  Age: 46 Year
  Sex: Female

DRUGS (10)
  1. HUMIRA [Suspect]
     Indication: CROHN'S DISEASE
     Dosage: LOADING DOSE
     Dates: start: 20110131
  2. AZOTHIAPRINE [Concomitant]
     Indication: BIPOLAR DISORDER
     Dosage: DAILY
  3. PREDNISONE TAB [Concomitant]
     Indication: PRODUCT USED FOR UNKNOWN INDICATION
     Dosage: DAILY
  4. TEMAZEPAM [Concomitant]
     Indication: BIPOLAR DISORDER
     Dosage: BEDTIME
  5. CYMBALTA [Concomitant]
     Indication: BIPOLAR DISORDER
  6. ABILIFY [Concomitant]
     Indication: BIPOLAR DISORDER
     Dosage: DAILY
  7. OXYCODONE HCL [Concomitant]
     Indication: PAIN
     Dosage: 1-2 TABLETS EVERY 4 HOURS PRN
  8. BENZTROPINE MESYLATE [Concomitant]
     Indication: BIPOLAR DISORDER
     Dosage: DAILY
  9. CLONAZEPAM [Concomitant]
     Indication: BIPOLAR DISORDER
     Dosage: DAILY
  10. PROMETHAZINE [Concomitant]
     Indication: NAUSEA
     Dosage: PRN FOUR TIMES A DAY

REACTIONS (1)
  - INJECTION SITE PAIN [None]
